FAERS Safety Report 4350498-2 (Version None)
Quarter: 2004Q2

REPORT INFORMATION
  Report Type: 
  Country: None (occurrence: None)
  Receive Date: 20040429
  Receipt Date: 20040429
  Transmission Date: 20050107
  Serious: Yes (Other)
  Sender: FDA-Public Use
  Company Number: None

PATIENT
  Age: 29 Year
  Sex: Male
  Weight: 70.3075 kg

DRUGS (1)
  1. PRILOSEC [Suspect]
     Indication: GASTRIC ULCER
     Dosage: 40 MG DAY ORAL
     Route: 048
     Dates: start: 20040325, end: 20040425

REACTIONS (4)
  - BLOOD GLUCOSE DECREASED [None]
  - DIARRHOEA [None]
  - FATIGUE [None]
  - MEDICATION ERROR [None]
